FAERS Safety Report 18498415 (Version 1)
Quarter: 2020Q4

REPORT INFORMATION
  Report Type: Spontaneous
  Country: US (occurrence: US)
  Receive Date: 20201112
  Receipt Date: 20201112
  Transmission Date: 20210114
  Serious: No
  Sender: FDA-Public Use
  Company Number: US-TAKEDA-2020TUS046519

PATIENT
  Sex: Female
  Weight: 160.09 kg

DRUGS (42)
  1. ASPIRIN (E.C.) [Concomitant]
     Active Substance: ASPIRIN
  2. VENTOLIN [Concomitant]
     Active Substance: ALBUTEROL SULFATE
  3. COCONUT OIL [Concomitant]
     Active Substance: COCONUT OIL
  4. LIDOCAINE. [Concomitant]
     Active Substance: LIDOCAINE
  5. PANTOPRAZOLE [Concomitant]
     Active Substance: PANTOPRAZOLE
  6. PROBIOTICA [Concomitant]
     Active Substance: PROBIOTICS NOS
  7. HEPARIN [Concomitant]
     Active Substance: HEPARIN SODIUM
  8. SYMBICORT [Concomitant]
     Active Substance: BUDESONIDE\FORMOTEROL FUMARATE DIHYDRATE
  9. ACTOS [Concomitant]
     Active Substance: PIOGLITAZONE HYDROCHLORIDE
  10. ZYRTEC [Concomitant]
     Active Substance: CETIRIZINE HYDROCHLORIDE
  11. KETOROLAC TROMETHAMINE. [Concomitant]
     Active Substance: KETOROLAC TROMETHAMINE
  12. IRON [Concomitant]
     Active Substance: IRON
  13. OMEGA 100 [Concomitant]
  14. ION K [Concomitant]
  15. EPINEPHRINE. [Concomitant]
     Active Substance: EPINEPHRINE
  16. AIMOVIG [Concomitant]
     Active Substance: ERENUMAB-AOOE
  17. ZOCOR [Concomitant]
     Active Substance: SIMVASTATIN
  18. MIRAPEX [Concomitant]
     Active Substance: PRAMIPEXOLE DIHYDROCHLORIDE
  19. GAMMAGARD LIQUID [Suspect]
     Active Substance: HUMAN IMMUNOGLOBULIN G
     Indication: IMMUNODEFICIENCY COMMON VARIABLE
     Dosage: 40 GRAM, Q2WEEKS
     Route: 042
     Dates: start: 20200117
  20. ZOFRAN [Concomitant]
     Active Substance: ONDANSETRON HYDROCHLORIDE
  21. OXYGEN. [Concomitant]
     Active Substance: OXYGEN
  22. MIGRAVENT [Concomitant]
     Active Substance: DIETARY SUPPLEMENT
  23. NORMAL SALINE [Concomitant]
     Active Substance: SODIUM CHLORIDE
  24. SINGULAIR [Concomitant]
     Active Substance: MONTELUKAST SODIUM
  25. PAXIL [Concomitant]
     Active Substance: PAROXETINE HYDROCHLORIDE
  26. GENTAMICIN. [Concomitant]
     Active Substance: GENTAMICIN
  27. BUSPIRONE [Concomitant]
     Active Substance: BUSPIRONE HYDROCHLORIDE
  28. GAMMAGARD [Concomitant]
     Active Substance: HUMAN IMMUNOGLOBULIN G
  29. TRULICITY [Concomitant]
     Active Substance: DULAGLUTIDE
  30. VITAMIN C ACID [Concomitant]
     Active Substance: ASCORBIC ACID
  31. HYDROCODONE [Concomitant]
     Active Substance: HYDROCODONE
  32. DIPHENHYDRAMINE. [Concomitant]
     Active Substance: DIPHENHYDRAMINE
  33. CARVEDILOL. [Concomitant]
     Active Substance: CARVEDILOL
  34. CELEBREX [Concomitant]
     Active Substance: CELECOXIB
  35. LISINOPRIL. [Concomitant]
     Active Substance: LISINOPRIL
  36. REGLAN [Concomitant]
     Active Substance: METOCLOPRAMIDE HYDROCHLORIDE
  37. ACETAMINOPHEN. [Concomitant]
     Active Substance: ACETAMINOPHEN
  38. SODIUM CHLORIDE. [Concomitant]
     Active Substance: SODIUM CHLORIDE
  39. INVOKANA [Concomitant]
     Active Substance: CANAGLIFLOZIN
  40. TIZANIDINE. [Concomitant]
     Active Substance: TIZANIDINE
  41. MYRBETRIQ [Concomitant]
     Active Substance: MIRABEGRON
  42. VESICARE [Concomitant]
     Active Substance: SOLIFENACIN SUCCINATE

REACTIONS (2)
  - Headache [Unknown]
  - Infusion related reaction [Unknown]
